FAERS Safety Report 13406396 (Version 1)
Quarter: 2017Q2

REPORT INFORMATION
  Report Type: Spontaneous
  Country: US (occurrence: US)
  Receive Date: 20170405
  Receipt Date: 20170405
  Transmission Date: 20170830
  Serious: No
  Sender: FDA-Public Use
  Company Number: US-ANTARES PHARMA, INC.-2017-SPO-SU-0061

PATIENT
  Age: 31 Year
  Sex: Female

DRUGS (1)
  1. SUMATRIPTAN INJECTION USP (AUTOINJECTOR) [Suspect]
     Active Substance: SUMATRIPTAN SUCCINATE
     Indication: MIGRAINE
     Dosage: 6 MG/0.5ML, UNK
     Route: 058

REACTIONS (1)
  - Device issue [Unknown]
